FAERS Safety Report 23382711 (Version 3)
Quarter: 2024Q1

REPORT INFORMATION
  Report Type: Report from Study
  Country: US (occurrence: US)
  Receive Date: 20240109
  Receipt Date: 20240201
  Transmission Date: 20240410
  Serious: Yes (Life-Threatening, Hospitalization, Other)
  Sender: FDA-Public Use
  Company Number: US-AMX-006904

PATIENT
  Age: 52 Year
  Sex: Female

DRUGS (3)
  1. RELYVRIO [Suspect]
     Active Substance: SODIUM PHENYLBUTYRATE\TAURURSODIOL
     Indication: Amyotrophic lateral sclerosis
     Dosage: 1 SACHET ONCE DAILY FOR 3 WEEKS, THEN 1 SACHET TWICE DAILY.
     Route: 048
     Dates: start: 20231221
  2. RILUZOLE [Concomitant]
     Active Substance: RILUZOLE
     Indication: Amyotrophic lateral sclerosis
     Dosage: UNKNOWN
     Route: 065
  3. RADICAVA [Suspect]
     Active Substance: EDARAVONE
     Indication: Amyotrophic lateral sclerosis
     Dosage: ON FOR 14 DAYS THEN OFF FOR 14 DAYS
     Route: 065
     Dates: start: 20231221

REACTIONS (11)
  - Coma [Recovered/Resolved]
  - Dyskinesia [Unknown]
  - Drug hypersensitivity [Unknown]
  - Neck pain [Recovered/Resolved]
  - Loss of consciousness [Unknown]
  - Tremor [Recovered/Resolved]
  - Pain in extremity [Recovered/Resolved]
  - Amnesia [Recovered/Resolved]
  - Malaise [Recovered/Resolved]
  - Aphonia [Recovered/Resolved]
  - Panic attack [Recovered/Resolved]

NARRATIVE: CASE EVENT DATE: 20231224
